FAERS Safety Report 14564079 (Version 2)
Quarter: 2018Q1

REPORT INFORMATION
  Report Type: Spontaneous
  Country: IL (occurrence: IL)
  Receive Date: 20180222
  Receipt Date: 20180226
  Transmission Date: 20180509
  Serious: Yes (Other)
  Sender: FDA-Public Use
  Company Number: IL-PFIZER INC-2018070749

PATIENT
  Age: 60 Year
  Sex: Female

DRUGS (6)
  1. SERENADA [Concomitant]
     Dosage: UNK
  2. ASPIRIN. [Concomitant]
     Active Substance: ASPIRIN
     Dosage: UNK
  3. MYCOBUTIN [Suspect]
     Active Substance: RIFABUTIN
     Indication: HELICOBACTER INFECTION
  4. LAMICTAL [Concomitant]
     Active Substance: LAMOTRIGINE
     Dosage: UNK
  5. TAMBOCOR [Concomitant]
     Active Substance: FLECAINIDE ACETATE
     Dosage: UNK
  6. CARDILOC [Concomitant]
     Active Substance: BISOPROLOL FUMARATE
     Dosage: UNK

REACTIONS (5)
  - Chest discomfort [Unknown]
  - Arrhythmia [Unknown]
  - Chromaturia [Unknown]
  - Condition aggravated [Unknown]
  - Dyspnoea [Unknown]
